FAERS Safety Report 7292886-0 (Version None)
Quarter: 2011Q1

REPORT INFORMATION
  Report Type: 
  Country: None (occurrence: None)
  Receive Date: 20110215
  Receipt Date: 20110202
  Transmission Date: 20110831
  Serious: Yes (Other)
  Sender: FDA-Public Use
  Company Number: PHFR2010IE02272

PATIENT
  Sex: Female
  Weight: 130 kg

DRUGS (7)
  1. CLOZARIL [Suspect]
     Indication: PSYCHOTIC DISORDER
     Dosage: 375 MG DAILY
     Route: 048
     Dates: start: 20090511
  2. OLANZAPINE [Concomitant]
     Dosage: 40 MG, UNK
     Route: 048
  3. FLURAZEPAM [Concomitant]
     Dosage: 30 MG, UNK
     Route: 048
  4. LITHIUM [Concomitant]
     Dosage: 800 MG, UNK
  5. ACETYLSALICYLIC ACID [Concomitant]
     Dosage: 75 MG, UNK
     Route: 048
  6. DEPO-PROVERA [Concomitant]
     Dosage: UNK DF, UNK
  7. VENLAFAXINE [Concomitant]
     Dosage: 225 MG, UNK
     Route: 048

REACTIONS (3)
  - WHITE BLOOD CELL COUNT INCREASED [None]
  - EOSINOPHIL COUNT INCREASED [None]
  - HIDRADENITIS [None]
